FAERS Safety Report 15323807 (Version 1)
Quarter: 2018Q3

REPORT INFORMATION
  Report Type: Spontaneous
  Country: US (occurrence: US)
  Receive Date: 20180828
  Receipt Date: 20180828
  Transmission Date: 20181010
  Serious: No
  Sender: FDA-Public Use
  Company Number: US-STRIDES ARCOLAB LIMITED-2018SP006422

PATIENT

DRUGS (3)
  1. RANITIDINE. [Suspect]
     Active Substance: RANITIDINE
     Indication: MULTIPLE ALLERGIES
     Dosage: 150 MG, BID
     Route: 065
     Dates: start: 20180313, end: 201805
  2. RANITIDINE. [Suspect]
     Active Substance: RANITIDINE
     Dosage: UNK (RESTARTED DOSE)
     Route: 065
     Dates: start: 201806
  3. CLEMASTINE [Concomitant]
     Active Substance: CLEMASTINE
     Indication: MULTIPLE ALLERGIES
     Dosage: 2.68 MG, UNK
     Route: 065

REACTIONS (4)
  - Flushing [Unknown]
  - Anger [Recovered/Resolved]
  - Anxiety [Recovered/Resolved]
  - Off label use [Unknown]

NARRATIVE: CASE EVENT DATE: 2018
